FAERS Safety Report 22085586 (Version 6)
Quarter: 2025Q4

REPORT INFORMATION
  Report Type: Spontaneous
  Country: US (occurrence: US)
  Receive Date: 20230310
  Receipt Date: 20251113
  Transmission Date: 20260118
  Serious: No
  Sender: SANOFI AVENTIS
  Company Number: US-SA-SAC20230307001189

PATIENT
  Age: 44 Year
  Sex: Female

DRUGS (51)
  1. DUPIXENT [Suspect]
     Active Substance: DUPILUMAB
     Indication: Dermatitis atopic
     Dosage: 300 MG, QOW
     Route: 058
     Dates: start: 20210219
  2. DUPIXENT [Suspect]
     Active Substance: DUPILUMAB
     Dosage: 300 MG, QOW
     Route: 058
  3. AZITHROMYCIN [Concomitant]
     Active Substance: AZITHROMYCIN
     Dosage: UNK
  4. DULOXETINE HYDROCHLORIDE [Concomitant]
     Active Substance: DULOXETINE HYDROCHLORIDE
     Dosage: UNK
  5. DULOXETINE HYDROCHLORIDE [Concomitant]
     Active Substance: DULOXETINE HYDROCHLORIDE
  6. GABAPENTIN [Concomitant]
     Active Substance: GABAPENTIN
     Dosage: UNK
  7. JARDIANCE [Concomitant]
     Active Substance: EMPAGLIFLOZIN
     Dosage: UNK
  8. JARDIANCE [Concomitant]
     Active Substance: EMPAGLIFLOZIN
  9. METOPROLOL TARTRATE [Concomitant]
     Active Substance: METOPROLOL TARTRATE
     Dosage: UNK
  10. MAGNESIUM HYDROXIDE [Concomitant]
     Active Substance: MAGNESIUM HYDROXIDE
     Dosage: UNK
  11. PEPCID [Concomitant]
     Active Substance: FAMOTIDINE
     Dosage: UNK
  12. PEPCID [Concomitant]
     Active Substance: FAMOTIDINE
  13. OMEPRAZOLE [Concomitant]
     Active Substance: OMEPRAZOLE
     Dosage: UNK
  14. TRULICITY [Concomitant]
     Active Substance: DULAGLUTIDE
     Dosage: UNK
  15. ASHLYNA [Concomitant]
     Active Substance: ETHINYL ESTRADIOL\LEVONORGESTREL
     Dosage: UNK
  16. ASHLYNA [Concomitant]
     Active Substance: ETHINYL ESTRADIOL\LEVONORGESTREL
  17. METHOCARBAMOL [Concomitant]
     Active Substance: METHOCARBAMOL
     Dosage: UNK
  18. FLUOCINONIDE [Concomitant]
     Active Substance: FLUOCINONIDE
     Dosage: UNK
  19. FLUOCINONIDE [Concomitant]
     Active Substance: FLUOCINONIDE
  20. LYRICA [Concomitant]
     Active Substance: PREGABALIN
     Dosage: UNK
  21. LYRICA [Concomitant]
     Active Substance: PREGABALIN
  22. MEXILETINE [Concomitant]
     Active Substance: MEXILETINE
     Dosage: UNK
  23. ALPHA LIPOIC [Concomitant]
  24. BUPROPION [Concomitant]
     Active Substance: BUPROPION
  25. CLOBETASOL [Concomitant]
     Active Substance: CLOBETASOL
  26. DAPSONE [Concomitant]
     Active Substance: DAPSONE
  27. DICLOFENAC [Concomitant]
     Active Substance: DICLOFENAC
  28. FAMOTIDINE [Concomitant]
     Active Substance: FAMOTIDINE
  29. FLUTICASONE [Concomitant]
     Active Substance: FLUTICASONE
  30. HYDROCODONE BITARTRATE [Concomitant]
     Active Substance: HYDROCODONE BITARTRATE
  31. MOUNJARO [Concomitant]
     Active Substance: TIRZEPATIDE
  32. NAMENDA [Concomitant]
     Active Substance: MEMANTINE HYDROCHLORIDE
  33. NYSTATIN AND TRIAMCINOLONE [Concomitant]
     Active Substance: NYSTATIN\TRIAMCINOLONE ACETONIDE
  34. PODOFILOX [Concomitant]
     Active Substance: PODOFILOX
  35. PREDNISONE [Concomitant]
     Active Substance: PREDNISONE
  36. PROAIR HFA [Concomitant]
     Active Substance: ALBUTEROL SULFATE
  37. PROPRANOLOL [Concomitant]
     Active Substance: PROPRANOLOL HYDROCHLORIDE
  38. PROTONIX [Concomitant]
     Active Substance: PANTOPRAZOLE SODIUM
  39. SYMBICORT [Concomitant]
     Active Substance: BUDESONIDE\FORMOTEROL FUMARATE DIHYDRATE
  40. VITAMIN C [Concomitant]
     Active Substance: ASCORBIC ACID
  41. VITAMIN D3 [Concomitant]
     Active Substance: CHOLECALCIFEROL
  42. XYZAL [Concomitant]
     Active Substance: LEVOCETIRIZINE DIHYDROCHLORIDE
  43. APPLE CIDER VINEGAR [MALUS SPP. VINEGAR EXTRACT] [Concomitant]
  44. VITAMIN B12 [Concomitant]
     Active Substance: CYANOCOBALAMIN
  45. CBD KINGS [Concomitant]
  46. MAGNESIUM HYDROXIDE [Concomitant]
     Active Substance: MAGNESIUM HYDROXIDE
  47. MINERALS\VITAMINS [Concomitant]
     Active Substance: MINERALS\VITAMINS
  48. BIFIDOBACTERIUM ANIMALIS LACTIS [Concomitant]
     Active Substance: BIFIDOBACTERIUM ANIMALIS LACTIS
  49. PROBIOTICS NOS [Concomitant]
     Active Substance: PROBIOTICS NOS
  50. AMITRIPTYLINE [Concomitant]
     Active Substance: AMITRIPTYLINE
  51. BOTOX [Concomitant]
     Active Substance: ONABOTULINUMTOXINA

REACTIONS (8)
  - Memory impairment [Unknown]
  - Dermatitis atopic [Recovered/Resolved]
  - Rash [Recovered/Resolved]
  - Discomfort [Recovering/Resolving]
  - Pruritus [Recovered/Resolved]
  - Erythema [Recovered/Resolved]
  - Skin swelling [Recovered/Resolved]
  - Drug ineffective [Unknown]

NARRATIVE: CASE EVENT DATE: 20230101
